FAERS Safety Report 7298672-X (Version None)
Quarter: 2011Q1

REPORT INFORMATION
  Report Type: 
  Country: None (occurrence: None)
  Receive Date: 20110207
  Receipt Date: 20110121
  Transmission Date: 20110831
  Serious: Yes (Other)
  Sender: FDA-Public Use
  Company Number: 2011AP000063

PATIENT
  Age: 35 Year
  Sex: Male

DRUGS (3)
  1. MYCOPHENOLATE MOFETIL [Suspect]
     Indication: IMMUNOSUPPRESSION
  2. TACROLIMUS [Concomitant]
  3. WARFARIN [Concomitant]

REACTIONS (7)
  - ANAEMIA [None]
  - LARGE INTESTINAL ULCER [None]
  - COLITIS [None]
  - TRANSPLANT FAILURE [None]
  - ACUTE GRAFT VERSUS HOST DISEASE IN INTESTINE [None]
  - HAEMODIALYSIS [None]
  - BLOOD CREATININE INCREASED [None]
